FAERS Safety Report 4421625-3 (Version None)
Quarter: 2004Q3

REPORT INFORMATION
  Report Type: 
  Country: None (occurrence: None)
  Receive Date: 20040809
  Receipt Date: 20040809
  Transmission Date: 20050211
  Serious: Yes (Hospitalization)
  Sender: FDA-Public Use
  Company Number: None

PATIENT
  Age: 56 Year
  Sex: Male

DRUGS (4)
  1. CISPLATIN [Suspect]
     Indication: OESOPHAGEAL CARCINOMA
     Dosage: 75 MG/M2 IV
     Dates: start: 20040628, end: 20040701
  2. CISPLATIN [Suspect]
     Indication: OESOPHAGEAL CARCINOMA
     Dosage: 75 MG/M2 IV
     Dates: start: 20040702, end: 20040729
  3. FLUOROURACIL [Suspect]
     Indication: OESOPHAGEAL CARCINOMA
     Dosage: 1000 MG/M2/DY X4 DAYS
     Dates: start: 20040628
  4. FLUOROURACIL [Suspect]
     Indication: OESOPHAGEAL CARCINOMA
     Dosage: 1000 MG/M2/DY X4 DAYS
     Dates: start: 20040726

REACTIONS (6)
  - DEHYDRATION [None]
  - HYPOKALAEMIA [None]
  - MUCOSAL INFLAMMATION [None]
  - PHARYNGITIS [None]
  - POST PROCEDURAL NAUSEA [None]
  - POST PROCEDURAL VOMITING [None]
